FAERS Safety Report 9855775 (Version 1)
Quarter: 2014Q1

REPORT INFORMATION
  Report Type: Spontaneous
  Country: US (occurrence: None)
  Receive Date: 20140128
  Receipt Date: 20140128
  Transmission Date: 20141002
  Serious: Yes (Death)
  Sender: FDA-Public Use
  Company Number: 2014AP000634

PATIENT
  Age: 40 Year
  Sex: Female

DRUGS (5)
  1. LAMOTRIGINE TABLETS [Suspect]
     Route: 048
  2. RISPERIDONE [Suspect]
     Route: 048
  3. BUSPIRONE HYDROCHLORIDE TABLETS, USP [Suspect]
     Route: 048
  4. ESTROGENS CONJUGATED [Suspect]
     Route: 048
  5. ESTROGENS CONJUGATED [Concomitant]

REACTIONS (1)
  - Completed suicide [None]
